FAERS Safety Report 6620260-6 (Version None)
Quarter: 2010Q1

REPORT INFORMATION
  Report Type: 
  Country: None (occurrence: None)
  Receive Date: 20100308
  Receipt Date: 20100308
  Transmission Date: 20100710
  Serious: Yes (Death)
  Sender: FDA-Public Use
  Company Number: None

PATIENT
  Age: 69 Year
  Sex: Female

DRUGS (6)
  1. REVLIMID [Suspect]
     Indication: MULTIPLE MYELOMA
     Dosage: 15MG 3X/WEEK ORALLY
     Route: 048
     Dates: start: 20090201, end: 20090301
  2. REVLIMID [Suspect]
     Indication: MULTIPLE MYELOMA
     Dosage: 15MG 3X/WEEK ORALLY
     Route: 048
     Dates: start: 20090601
  3. METOCLOPRAMIDE [Concomitant]
  4. FLUDROCORTISONE [Concomitant]
  5. PHOSLO [Concomitant]
  6. ONDANSETRON [Concomitant]

REACTIONS (2)
  - DISEASE PROGRESSION [None]
  - MULTIPLE MYELOMA [None]
